FAERS Safety Report 4796474-7 (Version None)
Quarter: 2005Q4

REPORT INFORMATION
  Report Type: 
  Country: None (occurrence: None)
  Receive Date: 20051011
  Receipt Date: 20050620
  Transmission Date: 20060501
  Serious: Yes (Death)
  Sender: FDA-Public Use
  Company Number: 2005-06-1189

PATIENT
  Age: 86 Year
  Sex: Male
  Weight: 79.8331 kg

DRUGS (2)
  1. TEMODAR [Suspect]
     Indication: BRAIN NEOPLASM MALIGNANT
     Dosage: 300MG QDX5DAY ORAL
     Route: 048
     Dates: start: 20050601, end: 20050601
  2. RADIATION THERAPY [Concomitant]

REACTIONS (1)
  - DISEASE PROGRESSION [None]
